FAERS Safety Report 4408499-1 (Version None)
Quarter: 2004Q3

REPORT INFORMATION
  Report Type: 
  Country: None (occurrence: None)
  Receive Date: 20040720
  Receipt Date: 20040708
  Transmission Date: 20050211
  Serious: Yes (Other)
  Sender: FDA-Public Use
  Company Number: 200410230BFR

PATIENT
  Age: 33 Month
  Sex: Male
  Weight: 20 kg

DRUGS (34)
  1. KOGENATE FS [Suspect]
     Indication: FACTOR VIII DEFICIENCY
     Dosage: SEE IMAGE
     Route: 042
     Dates: start: 20040119, end: 20040319
  2. KOGENATE FS [Suspect]
     Indication: FACTOR VIII DEFICIENCY
     Dosage: SEE IMAGE
     Route: 042
     Dates: start: 20040322, end: 20040402
  3. KOGENATE FS [Suspect]
     Indication: FACTOR VIII DEFICIENCY
     Dosage: SEE IMAGE
     Route: 042
     Dates: start: 20040408, end: 20040409
  4. KOGENATE FS [Suspect]
     Indication: FACTOR VIII DEFICIENCY
     Dosage: SEE IMAGE
     Route: 042
     Dates: start: 20040410, end: 20040411
  5. KOGENATE FS [Suspect]
     Indication: FACTOR VIII DEFICIENCY
     Dosage: SEE IMAGE
     Route: 042
     Dates: start: 20040419, end: 20040503
  6. KOGENATE FS [Suspect]
     Indication: FACTOR VIII DEFICIENCY
     Dosage: SEE IMAGE
     Route: 042
     Dates: start: 20031105
  7. KOGENATE FS [Suspect]
     Indication: FACTOR VIII DEFICIENCY
     Dosage: SEE IMAGE
     Route: 042
     Dates: start: 20031107
  8. KOGENATE FS [Suspect]
     Indication: FACTOR VIII DEFICIENCY
     Dosage: SEE IMAGE
     Route: 042
     Dates: start: 20040405
  9. KOGENATE FS [Suspect]
     Indication: FACTOR VIII DEFICIENCY
     Dosage: SEE IMAGE
     Route: 042
     Dates: start: 20040406
  10. KOGENATE FS [Suspect]
     Indication: FACTOR VIII DEFICIENCY
     Dosage: SEE IMAGE
     Route: 042
     Dates: start: 20040407
  11. KOGENATE FS [Suspect]
     Indication: FACTOR VIII DEFICIENCY
     Dosage: SEE IMAGE
     Route: 042
     Dates: start: 20040412
  12. KOGENATE FS [Suspect]
     Indication: FACTOR VIII DEFICIENCY
     Dosage: SEE IMAGE
     Route: 042
     Dates: start: 20040414
  13. KOGENATE FS [Suspect]
     Indication: FACTOR VIII DEFICIENCY
     Dosage: SEE IMAGE
     Route: 042
     Dates: start: 20040416
  14. KOGENATE FS [Suspect]
     Indication: FACTOR VIII DEFICIENCY
     Dosage: SEE IMAGE
     Route: 042
     Dates: start: 20040504
  15. KOGENATE FS [Suspect]
     Indication: FACTOR VIII DEFICIENCY
     Dosage: SEE IMAGE
     Route: 042
     Dates: start: 20040506
  16. KOGENATE FS [Suspect]
     Indication: FACTOR VIII DEFICIENCY
     Dosage: SEE IMAGE
     Route: 042
     Dates: start: 20040517
  17. KOGENATE FS [Suspect]
     Indication: FACTOR VIII DEFICIENCY
     Dosage: SEE IMAGE
     Route: 042
     Dates: start: 20040619
  18. KOGENATE FS [Suspect]
  19. KOGENATE FS [Suspect]
     Dates: start: 20031110, end: 20031121
  20. KOGENATE FS [Suspect]
     Dates: start: 20040119, end: 20040319
  21. KOGENATE FS [Suspect]
     Dates: start: 20040322, end: 20040402
  22. KOGENATE FS [Suspect]
     Dates: start: 20040405
  23. KOGENATE FS [Suspect]
     Dates: start: 20040406
  24. KOGENATE FS [Suspect]
     Dates: start: 20040407
  25. KOGENATE FS [Suspect]
     Dates: start: 20040408, end: 20040409
  26. KOGENATE FS [Suspect]
     Dates: start: 20040410, end: 20040411
  27. KOGENATE FS [Suspect]
     Dates: start: 20040412
  28. KOGENATE FS [Suspect]
     Dates: start: 20040414
  29. KOGENATE FS [Suspect]
     Dates: start: 20040416
  30. KOGENATE FS [Suspect]
     Dates: start: 20040419, end: 20040503
  31. KOGENATE FS [Suspect]
     Dates: start: 20040504
  32. KOGENATE FS [Suspect]
     Dates: start: 20040506
  33. KOGENATE FS [Suspect]
     Dates: start: 20040517
  34. KOGENATE FS [Suspect]
     Dates: start: 20040619

REACTIONS (11)
  - ANTI FACTOR VIII ANTIBODY POSITIVE [None]
  - ARTHRALGIA [None]
  - DRUG INEFFECTIVE [None]
  - HAEMARTHROSIS [None]
  - HAEMATOMA [None]
  - INTERMITTENT CLAUDICATION [None]
  - JOINT EFFUSION [None]
  - MEDICATION ERROR [None]
  - NERVE COMPRESSION [None]
  - PAIN IN EXTREMITY [None]
  - PHARMACEUTICAL PRODUCT COMPLAINT [None]
